FAERS Safety Report 7677097-9 (Version None)
Quarter: 2011Q3

REPORT INFORMATION
  Report Type: 
  Country: None (occurrence: None)
  Receive Date: 20110811
  Receipt Date: 20110801
  Transmission Date: 20111222
  Serious: Yes (Hospitalization)
  Sender: FDA-Public Use
  Company Number: US-JNJFOC-20071102842

PATIENT
  Sex: Female
  Weight: 76 kg

DRUGS (4)
  1. INFLIXIMAB [Suspect]
     Dosage: TOTAL 6 DOSES
     Route: 042
     Dates: start: 20070919
  2. MESALAMINE [Concomitant]
  3. INFLIXIMAB [Suspect]
     Indication: COLITIS ULCERATIVE
     Route: 042
     Dates: start: 20070210
  4. ZANTAC [Concomitant]

REACTIONS (1)
  - COLITIS [None]
